FAERS Safety Report 5131603-7 (Version None)
Quarter: 2006Q4

REPORT INFORMATION
  Report Type: 
  Country: None (occurrence: None)
  Receive Date: 20061020
  Receipt Date: 20060220
  Transmission Date: 20070319
  Serious: Yes (Hospitalization, Other)
  Sender: FDA-Public Use
  Company Number: BE-ABBOTT-06P-013-0325626-00

PATIENT
  Sex: Female

DRUGS (9)
  1. HUMIRA [Suspect]
     Indication: RHEUMATOID ARTHRITIS
     Route: 058
     Dates: start: 20050929, end: 20051013
  2. HUMIRA [Suspect]
     Route: 058
     Dates: start: 20051207
  3. HUMIRA [Suspect]
     Route: 058
  4. PERINDOPRIL ERBUMINE [Concomitant]
     Indication: DRUG USE FOR UNKNOWN INDICATION
  5. LEVOTHYROXINE SODIUM [Concomitant]
     Indication: DRUG USE FOR UNKNOWN INDICATION
  6. INDOMETHACIN [Concomitant]
     Indication: DRUG USE FOR UNKNOWN INDICATION
  7. INDOMETHACIN [Concomitant]
  8. GLUTEAL [Concomitant]
     Indication: EYE DISORDER
  9. HYABAK [Concomitant]
     Indication: EYE DISORDER

REACTIONS (9)
  - ABSCESS LIMB [None]
  - CHILLS [None]
  - CYST [None]
  - FLUID RETENTION [None]
  - JOINT DESTRUCTION [None]
  - JOINT DISLOCATION [None]
  - OSTEOMYELITIS [None]
  - PAIN IN EXTREMITY [None]
  - PYREXIA [None]
